FAERS Safety Report 19497366 (Version 1)
Quarter: 2021Q3

REPORT INFORMATION
  Report Type: Spontaneous
  Country: CN (occurrence: CN)
  Receive Date: 20210706
  Receipt Date: 20210706
  Transmission Date: 20211014
  Serious: Yes (Other)
  Sender: FDA-Public Use
  Company Number: CN-BAYER-2021-167196

PATIENT
  Age: 72 Year
  Sex: Female
  Weight: 49 kg

DRUGS (4)
  1. ETHAMBUTOL HYDROCHLORIDE. [Suspect]
     Active Substance: ETHAMBUTOL HYDROCHLORIDE
     Indication: ANTI-INFECTIVE THERAPY
     Dosage: 0.75 G, QD
     Route: 048
     Dates: start: 20210613, end: 20210625
  2. AVELOX [Suspect]
     Active Substance: MOXIFLOXACIN HYDROCHLORIDE
     Indication: ANTI-INFECTIVE THERAPY
     Dosage: 0.4 G, QD
     Route: 048
     Dates: start: 20210613, end: 20210625
  3. CLARITHROMYCIN. [Suspect]
     Active Substance: CLARITHROMYCIN
     Indication: ANTI-INFECTIVE THERAPY
     Dosage: 0.5 G, QD
     Route: 048
     Dates: start: 20210613, end: 20210625
  4. RIFAMPICIN [Suspect]
     Active Substance: RIFAMPIN
     Indication: ANTI-INFECTIVE THERAPY
     Dosage: 0.45 G, QD
     Route: 048
     Dates: start: 20210613, end: 20210625

REACTIONS (5)
  - Skin warm [Recovering/Resolving]
  - Erythema [Recovering/Resolving]
  - Lymphangitis [Recovering/Resolving]
  - Pain of skin [Recovering/Resolving]
  - Skin swelling [Recovering/Resolving]

NARRATIVE: CASE EVENT DATE: 20210618
